FAERS Safety Report 8103898-9 (Version None)
Quarter: 2012Q1

REPORT INFORMATION
  Report Type: 
  Country: None (occurrence: None)
  Receive Date: 20120201
  Receipt Date: 20120126
  Transmission Date: 20120608
  Serious: Yes (Other)
  Sender: FDA-Public Use
  Company Number: GR-PFIZER INC-2012022290

PATIENT
  Age: 53 Year
  Sex: Male
  Weight: 172 kg

DRUGS (4)
  1. SEROQUEL [Concomitant]
     Dosage: UNK
     Dates: start: 19980101
  2. GEODON [Suspect]
     Indication: INSOMNIA
     Dosage: 80 MG, 1X/DAY (AT THE NIGHT)
     Dates: start: 20030901, end: 20050101
  3. ABILIFY [Concomitant]
     Indication: INSOMNIA
     Dosage: UNK
     Dates: start: 20070101
  4. GEODON [Suspect]
     Dosage: UNK

REACTIONS (6)
  - WEIGHT DECREASED [None]
  - INCREASED APPETITE [None]
  - SOMNOLENCE [None]
  - CARDIAC FAILURE CONGESTIVE [None]
  - TACHYCARDIA [None]
  - DYSPNOEA [None]
